FAERS Safety Report 9182176 (Version 1)
Quarter: 2012Q4

REPORT INFORMATION
  Report Type: 
  Country: US (occurrence: US)
  Receive Date: 20121030
  Receipt Date: 20121030
  Transmission Date: 20130627
  Serious: Yes (Other)
  Sender: FDA-Public Use
  Company Number: US-RB-046036-12

PATIENT
  Age: 23 Year
  Sex: Female

DRUGS (2)
  1. MUCINEX FAST MAX ADULT DM (GUAIFENESIN) [Suspect]
     Indication: PRODUCT USED FOR UNKNOWN INDICATION
     Dosage: Patient also took the product on 24-OCT-2012.
     Route: 048
     Dates: start: 20121023
  2. MUCINEX FAST MAX ADULT DM [Suspect]

REACTIONS (1)
  - Epistaxis [Recovered/Resolved]
